FAERS Safety Report 9950689 (Version 1)
Quarter: 2014Q1

REPORT INFORMATION
  Report Type: Spontaneous
  Country: US (occurrence: US)
  Receive Date: 20140304
  Receipt Date: 20140304
  Transmission Date: 20141002
  Serious: No
  Sender: FDA-Public Use
  Company Number: US-AMGEN-USASP2013072692

PATIENT
  Age: 38 Year
  Sex: Female
  Weight: 77.1 kg

DRUGS (4)
  1. ENBREL [Suspect]
     Indication: PRODUCT USED FOR UNKNOWN INDICATION
     Dosage: 50 MG, QWK
     Route: 058
  2. BENADRYL                           /00000402/ [Concomitant]
     Dosage: 25 MG, UNK
  3. ADVIL                              /00044201/ [Concomitant]
     Dosage: 200 MG, UNK
  4. EXCEDRIN                           /00391201/ [Concomitant]
     Dosage: UNK

REACTIONS (1)
  - Injection site induration [Unknown]
